FAERS Safety Report 18134493 (Version 1)
Quarter: 2020Q3

REPORT INFORMATION
  Report Type: Spontaneous
  Country: US (occurrence: US)
  Receive Date: 20200811
  Receipt Date: 20200811
  Transmission Date: 20201103
  Serious: No
  Sender: FDA-Public Use
  Company Number: US-PFIZER INC-2020304579

PATIENT
  Age: 75 Year
  Sex: Female
  Weight: 58.97 kg

DRUGS (2)
  1. PHENOBARBITAL. [Suspect]
     Active Substance: PHENOBARBITAL
     Dosage: UNK
  2. DILANTIN [Suspect]
     Active Substance: PHENYTOIN
     Indication: EPILEPSY
     Dosage: 130 MG, DAILY(TAKE A 30MG IN THE MORNING AND TAKE A 100MG WITH THE PHENOBARBITAL BEFORE BED.)
     Dates: start: 1964

REACTIONS (2)
  - Body height decreased [Unknown]
  - Intentional product misuse [Unknown]
